FAERS Safety Report 5371683-7 (Version None)
Quarter: 2007Q2

REPORT INFORMATION
  Report Type: 
  Country: None (occurrence: None)
  Receive Date: 20070622
  Receipt Date: 20070613
  Transmission Date: 20071010
  Serious: Yes (Hospitalization)
  Sender: FDA-Public Use
  Company Number: 200713632GDDC

PATIENT
  Age: 72 Year
  Sex: Male
  Weight: 60 kg

DRUGS (8)
  1. CISPLATIN [Suspect]
     Indication: HYPOPHARYNGEAL CANCER
     Dosage: 170 MG IV
     Route: 042
     Dates: start: 20070117, end: 20070312
  2. FLUOROURACIL [Suspect]
     Indication: HYPOPHARYNGEAL CANCER
     Dosage: 170 MG IV
     Route: 042
     Dates: start: 20070117, end: 20070121
  3. RADIOTHERAPY [Suspect]
     Indication: HYPOPHARYNGEAL CANCER
     Dates: start: 20070213
  4. FLUIMUCIL [Concomitant]
  5. PARACETAMOL [Concomitant]
  6. NEOBRUFEN [Concomitant]
  7. DURAGESIC-100 [Concomitant]
  8. ACTOS [Concomitant]

REACTIONS (5)
  - APHAGIA [None]
  - CATHETER RELATED COMPLICATION [None]
  - MUCOSAL INFLAMMATION [None]
  - SEPTIC PHLEBITIS [None]
  - STAPHYLOCOCCAL BACTERAEMIA [None]
